FAERS Safety Report 6153859-4 (Version None)
Quarter: 2009Q2

REPORT INFORMATION
  Report Type: 
  Country: None (occurrence: None)
  Receive Date: 20090414
  Receipt Date: 20090402
  Transmission Date: 20091009
  Serious: Yes (Other)
  Sender: FDA-Public Use
  Company Number: US-JNJFOC-20090400897

PATIENT
  Sex: Female
  Weight: 47.17 kg

DRUGS (8)
  1. REMICADE [Suspect]
     Route: 042
  2. REMICADE [Suspect]
     Indication: CROHN'S DISEASE
     Dosage: 5 DOSES
     Route: 042
  3. CYMBALTA [Concomitant]
     Indication: MIGRAINE
  4. PREDNISONE [Concomitant]
     Indication: ARTHRITIS
  5. IMURAN [Concomitant]
     Indication: CROHN'S DISEASE
  6. VITAMIN D [Concomitant]
     Indication: VITAMIN D DEFICIENCY
  7. VICOPROFEN [Concomitant]
     Indication: ARTHRITIS
  8. LIALDA [Concomitant]
     Indication: CROHN'S DISEASE

REACTIONS (9)
  - ATAXIA [None]
  - DIZZINESS [None]
  - DYSTONIA [None]
  - GAIT DISTURBANCE [None]
  - INFUSION RELATED REACTION [None]
  - POSTURE ABNORMAL [None]
  - TACHYCARDIA [None]
  - TREMOR [None]
  - VERTIGO [None]
